FAERS Safety Report 9562137 (Version 3)
Quarter: 2013Q4

REPORT INFORMATION
  Report Type: Spontaneous
  Country: JP (occurrence: None)
  Receive Date: 20130925
  Receipt Date: 20131205
  Transmission Date: 20140711
  Serious: Yes (Other)
  Sender: FDA-Public Use
  Company Number: JP-2013-13972

PATIENT
  Age: 75 Year
  Sex: Male

DRUGS (14)
  1. OPC-41061 [Suspect]
     Indication: GLOMERULONEPHRITIS CHRONIC
     Route: 048
     Dates: start: 20130905, end: 20130906
  2. LASIX (FUROSEMIDE) [Concomitant]
  3. RENIVACE (ENALAPRIL MALEATE) [Concomitant]
  4. ATELEC (CLINIDIPINE0 [Concomitant]
  5. DIOVAN (VALSARTAN) [Concomitant]
  6. ZYLORIC (ALLOPURINOL) [Concomitant]
  7. ALFAROL (ALFACALCIDOL) [Concomitant]
  8. BUFFERIN (ACETYLSALICYLIC ACID, HYDROTALCITE) [Concomitant]
  9. HORIZON (DIAZEPAM) [Concomitant]
  10. PURSENNID (SENNOSIDE A+B CALCIUM) [Concomitant]
  11. LOCHOL (FLUVASTATIN SODIUM) [Concomitant]
  12. MIRCERA (PEGZEREPOETIN ALFA) [Concomitant]
  13. SHAKUYAKUKANZOTO (SHAKUYAKUKANZOTO) [Concomitant]
  14. CRAVIT (LEVOFLOXACIN) [Concomitant]

REACTIONS (3)
  - Blood sodium decreased [None]
  - Blood potassium decreased [None]
  - Vomiting [None]
